FAERS Safety Report 16806162 (Version 1)
Quarter: 2019Q3

REPORT INFORMATION
  Report Type: Spontaneous
  Country: RO (occurrence: RO)
  Receive Date: 20190913
  Receipt Date: 20190913
  Transmission Date: 20191005
  Serious: Yes (Other)
  Sender: FDA-Public Use
  Company Number: RO-ASTRAZENECA-2019SF27635

PATIENT
  Age: 51 Year
  Sex: Male

DRUGS (9)
  1. BRILIQUE [Suspect]
     Active Substance: TICAGRELOR
     Indication: MYOCARDIAL INFARCTION
     Route: 048
  2. ASA [Concomitant]
     Active Substance: ASPIRIN
     Indication: STENT PLACEMENT
  3. OMACOR [Concomitant]
     Active Substance: OMEGA-3-ACID ETHYL ESTERS
  4. ANXIAR [Concomitant]
     Active Substance: LORAZEPAM
  5. BRILIQUE [Suspect]
     Active Substance: TICAGRELOR
     Indication: STENT PLACEMENT
     Route: 048
  6. SORTIS [Concomitant]
     Active Substance: ATORVASTATIN
  7. BETALOC [Concomitant]
     Active Substance: METOPROLOL TARTRATE
  8. ASA [Concomitant]
     Active Substance: ASPIRIN
     Indication: ACUTE MYOCARDIAL INFARCTION
  9. PREDUCTAL [Concomitant]
     Active Substance: TRIMETAZIDINE DIHYDROCHLORIDE

REACTIONS (1)
  - Myocardial infarction [Unknown]
